FAERS Safety Report 20073567 (Version 1)
Quarter: 2021Q4

REPORT INFORMATION
  Report Type: Spontaneous
  Country: IN (occurrence: IN)
  Receive Date: 20211116
  Receipt Date: 20211116
  Transmission Date: 20220303
  Serious: Yes (Other)
  Sender: FDA-Public Use
  Company Number: IN-ENDO PHARMACEUTICALS INC-2021-012767

PATIENT
  Age: 18 Year
  Sex: Male

DRUGS (4)
  1. CYPROHEPTADINE HYDROCHLORIDE [Suspect]
     Active Substance: CYPROHEPTADINE HYDROCHLORIDE
     Indication: Performance enhancing product use
     Dosage: UNK UNKNOWN, UNKNOWN (TWO YEARS BACK)
     Route: 065
  2. CYPROHEPTADINE HYDROCHLORIDE [Suspect]
     Active Substance: CYPROHEPTADINE HYDROCHLORIDE
     Dosage: 8 MG, UNKNOWN (IN TWO DIVIDED DOSES)
     Route: 065
  3. DEXAMETHASONE [Suspect]
     Active Substance: DEXAMETHASONE
     Indication: Performance enhancing product use
     Dosage: UNK UNKNOWN, UNKNOWN (TWO YEARS BACK)
     Route: 065
  4. DEXAMETHASONE [Suspect]
     Active Substance: DEXAMETHASONE
     Dosage: 0.5 MG, BID
     Route: 065

REACTIONS (5)
  - Suicide attempt [Recovered/Resolved]
  - Obsessive-compulsive disorder [Recovered/Resolved]
  - Drug interaction [Recovered/Resolved]
  - Acne [Recovered/Resolved]
  - Off label use [Recovered/Resolved]
